FAERS Safety Report 19520051 (Version 1)
Quarter: 2021Q3

REPORT INFORMATION
  Report Type: Spontaneous
  Country: PL (occurrence: PL)
  Receive Date: 20210712
  Receipt Date: 20210712
  Transmission Date: 20211014
  Serious: Yes (Other)
  Sender: FDA-Public Use
  Company Number: PL-BAYER-2021-171462

PATIENT
  Age: 70 Year
  Sex: Female
  Weight: 90 kg

DRUGS (1)
  1. ULTRAVIST [Suspect]
     Active Substance: IOPROMIDE
     Indication: DIAGNOSTIC PROCEDURE
     Dosage: UNK
     Route: 042
     Dates: start: 20181001, end: 20181001

REACTIONS (5)
  - Abdominal pain [Unknown]
  - Blister [Unknown]
  - Pruritus [Unknown]
  - Asthenia [Unknown]
  - Sneezing [Unknown]

NARRATIVE: CASE EVENT DATE: 20181001
